FAERS Safety Report 4794472-0 (Version None)
Quarter: 2005Q4

REPORT INFORMATION
  Report Type: 
  Country: None (occurrence: None)
  Receive Date: 20051011
  Receipt Date: 20051004
  Transmission Date: 20060501
  Serious: Yes (Other)
  Sender: FDA-Public Use
  Company Number: PHNU2005DE03360

PATIENT
  Age: 70 Year
  Sex: Female

DRUGS (1)
  1. EMSELEX EXTENDED RELEASE [Suspect]
     Dosage: 7.5 MG, ONCE/SINGLE
     Route: 048

REACTIONS (6)
  - ANAPHYLACTOID REACTION [None]
  - DIZZINESS [None]
  - ERYTHEMA [None]
  - FEELING HOT [None]
  - NAUSEA [None]
  - PRURITUS [None]
